FAERS Safety Report 18360397 (Version 2)
Quarter: 2020Q4

REPORT INFORMATION
  Report Type: Spontaneous
  Country: US (occurrence: US)
  Receive Date: 20201008
  Receipt Date: 20201125
  Transmission Date: 20210114
  Serious: Yes (Other)
  Sender: FDA-Public Use
  Company Number: US-MYLANLABS-2020M1085032

PATIENT
  Sex: Female

DRUGS (14)
  1. HYDROCORTISONE. [Suspect]
     Active Substance: HYDROCORTISONE
     Indication: ADRENOGENITAL SYNDROME
     Dosage: 10 MILLIGRAM DISSOLVED IN 10ML WATER
     Route: 048
  2. HYDROCORTISONE. [Suspect]
     Active Substance: HYDROCORTISONE
     Indication: ADRENOGENITAL SYNDROME
     Dosage: 1 TABLET DISSOLVED IN 5ML WATER..
     Route: 048
  3. HYDROCORTISONE. [Suspect]
     Active Substance: HYDROCORTISONE
     Dosage: 5.8 MILLIGRAM/SQ. METER, QDTABLET DISSOLVED IN WATER
     Route: 048
  4. HYDROCORTISONE. [Suspect]
     Active Substance: HYDROCORTISONE
     Dosage: 1.3 MILLIGRAM TID STARTED ON DAY 6 OF LIFE; THREE TIMES A DAY..
     Route: 048
  5. HYDROCORTISONE. [Suspect]
     Active Substance: HYDROCORTISONE
     Dosage: 7.1 MILLIGRAM/SQ. METER, QDTABLET DISSOLVED IN WATER
     Route: 048
  6. FLUDROCORTISONE [Concomitant]
     Active Substance: FLUDROCORTISONE
     Dosage: .05 MILLIGRAM, QD
     Route: 065
  7. SODIUM CHLORIDE. [Suspect]
     Active Substance: SODIUM CHLORIDE
     Indication: ADRENOGENITAL SYNDROME
     Dosage: 10.2 MEQ/KG/DAY
     Route: 065
  8. HYDROCORTISONE. [Suspect]
     Active Substance: HYDROCORTISONE
     Dosage: UNKAT THE AGE OF 4 YEAR, TABLET DISSOLVED IN WATER..
     Route: 048
  9. HYDROCORTISONE. [Suspect]
     Active Substance: HYDROCORTISONE
     Dosage: 6.6 MILLIGRAM/SQ. METER, QD AT THE AGE OF 12 MONTHS..
     Route: 048
  10. HYDROCORTISONE. [Suspect]
     Active Substance: HYDROCORTISONE
     Dosage: 1.2 MILLIGRAM, TID3 TIMES A..
     Route: 048
  11. FLUDROCORTISONE [Concomitant]
     Active Substance: FLUDROCORTISONE
     Indication: ADRENOGENITAL SYNDROME
     Dosage: 0.1 MILLIGRAM, QD
     Route: 065
  12. HYDROCORTISONE. [Suspect]
     Active Substance: HYDROCORTISONE
     Dosage: 4.35 MILLIGRAM/SQ. METER, QDTABLET DISSOLVED IN WATER
     Route: 048
  13. HYDROCORTISONE. [Suspect]
     Active Substance: HYDROCORTISONE
     Dosage: 12.2 MILLIGRAM/SQ. METER, QDTABLET DISSOLVED IN WATER
     Route: 048
  14. HYDROCORTISONE. [Suspect]
     Active Substance: HYDROCORTISONE
     Dosage: 8.1 MILLIGRAM/SQ. METER, QD SPLIT INTO FOUR DOSES AT 6 AM..
     Route: 048

REACTIONS (4)
  - Cushing^s syndrome [Recovered/Resolved]
  - Hypothalamic pituitary adrenal axis suppression [Recovered/Resolved]
  - Product administration error [Recovered/Resolved]
  - Intentional product misuse [Recovered/Resolved]
